FAERS Safety Report 8609597 (Version 8)
Quarter: 2020Q1

REPORT INFORMATION
  Report Type: Spontaneous
  Country: BR (occurrence: BR)
  Receive Date: 20120612
  Receipt Date: 20200330
  Transmission Date: 20200409
  Serious: Yes (Other)
  Sender: FDA-Public Use
  Company Number: BR-AMGEN-BRASP2012022422

PATIENT
  Age: 52 Year
  Sex: Female
  Weight: 90 kg

DRUGS (17)
  1. ENBREL [Suspect]
     Active Substance: ETANERCEPT
     Indication: RHEUMATOID ARTHRITIS
     Dosage: 50 MILLIGRAM, QWK
     Route: 058
     Dates: start: 20120226
  2. NEXIUM [Concomitant]
     Active Substance: ESOMEPRAZOLE MAGNESIUM
     Indication: GASTRIC DISORDER
     Dosage: 20 MILLIGRAM, QD
     Route: 065
  3. FLUOXETINE [Concomitant]
     Active Substance: FLUOXETINE HYDROCHLORIDE
     Dosage: 20 MILLIGRAM
     Route: 065
  4. REDUCLIM [Concomitant]
     Active Substance: TIBOLONE
     Indication: HORMONE REPLACEMENT THERAPY
     Dosage: 1.25 MILLIGRAM, QD
     Route: 065
  5. ENBREL [Suspect]
     Active Substance: ETANERCEPT
     Dosage: 25 MILLIGRAM, 2 TIMES/WK
     Route: 065
     Dates: start: 201212, end: 201302
  6. METHOTREXATE. [Concomitant]
     Active Substance: METHOTREXATE
     Indication: RHEUMATOID ARTHRITIS
     Dosage: 12 MILLIGRAM, QWK
     Route: 065
  7. ENBREL [Suspect]
     Active Substance: ETANERCEPT
     Dosage: UNK
     Route: 065
     Dates: start: 201206
  8. PANTOPRAZOLE [Concomitant]
     Active Substance: PANTOPRAZOLE
     Indication: GASTRIC DISORDER
     Dosage: 20 MILLIGRAM
     Route: 065
  9. OMEPRAZOLE. [Concomitant]
     Active Substance: OMEPRAZOLE
     Indication: OESOPHAGITIS
     Dosage: UNK
     Route: 065
     Dates: start: 2009
  10. PREDSIM [Concomitant]
     Active Substance: PREDNISOLONE
     Dosage: UNK
     Route: 065
  11. PRELONE [Concomitant]
     Active Substance: PREDNISOLONE
     Indication: PAIN
     Dosage: 5 MILLIGRAM, BID
     Route: 065
  12. DEFLAZACORT [Concomitant]
     Active Substance: DEFLAZACORT
     Dosage: UNK
     Route: 065
  13. ENBREL [Suspect]
     Active Substance: ETANERCEPT
     Dosage: 50 MILLIGRAM, QWK
     Route: 058
     Dates: start: 201302
  14. LANSOPRAZOLE. [Concomitant]
     Active Substance: LANSOPRAZOLE
     Indication: GASTRIC DISORDER
     Dosage: 30 MILLIGRAM
     Route: 065
  15. KETOROLAC [Concomitant]
     Active Substance: KETOROLAC TROMETHAMINE
     Dosage: UNK, AS NECESSARY, WHEN FEELING PAIN
  16. DOLAMIN FLEX [Concomitant]
     Active Substance: CLONIXIN\CYCLOBENZAPRINE
     Indication: MUSCLE RELAXANT THERAPY
     Dosage: UNK, AS NECESSARY
     Route: 065
  17. PRELONE [Concomitant]
     Active Substance: PREDNISOLONE
     Dosage: 7 MILLIGRAM
     Route: 065

REACTIONS (26)
  - Headache [Not Recovered/Not Resolved]
  - Hyperhidrosis [Unknown]
  - Fluid retention [Not Recovered/Not Resolved]
  - Spinal pain [Unknown]
  - Abdominal distension [Not Recovered/Not Resolved]
  - Dengue fever [Unknown]
  - Drug ineffective [Unknown]
  - Lip injury [Not Recovered/Not Resolved]
  - Bronchospasm [Unknown]
  - Blood pressure systolic increased [Not Recovered/Not Resolved]
  - Injection site haematoma [Unknown]
  - Chest pain [Unknown]
  - Abdominal pain upper [Not Recovered/Not Resolved]
  - Eye pain [Unknown]
  - Gait disturbance [Not Recovered/Not Resolved]
  - Injection site oedema [Unknown]
  - Abdominal discomfort [Not Recovered/Not Resolved]
  - Intervertebral disc protrusion [Not Recovered/Not Resolved]
  - Dry mouth [Not Recovered/Not Resolved]
  - Injection site hypersensitivity [Unknown]
  - Cough [Unknown]
  - Pyrexia [Unknown]
  - Weight increased [Unknown]
  - Nausea [Unknown]
  - Injection site pruritus [Unknown]
  - Injection site erythema [Unknown]

NARRATIVE: CASE EVENT DATE: 201205
